FAERS Safety Report 9049886 (Version 1)
Quarter: 2013Q1

REPORT INFORMATION
  Report Type: Spontaneous
  Country: US (occurrence: US)
  Receive Date: 20130205
  Receipt Date: 20130205
  Transmission Date: 20140127
  Serious: No
  Sender: FDA-Public Use
  Company Number: US-PFIZER INC-2013042456

PATIENT
  Sex: Female

DRUGS (5)
  1. ZOLOFT [Suspect]
     Indication: DEPRESSION
     Dosage: 50 MG, DAILY
     Route: 048
     Dates: start: 20050318
  2. ZOLOFT [Suspect]
     Dosage: UNK
     Route: 048
     Dates: start: 20060811
  3. ZOLOFT [Suspect]
     Dosage: 100 MG, DAILY
     Route: 048
  4. ZOLOFT [Suspect]
     Dosage: 200 MG, DAILY
     Route: 048
  5. ZOLOFT [Suspect]
     Dosage: 400 MG, DAILY
     Route: 048

REACTIONS (1)
  - Drug ineffective [Unknown]
